FAERS Safety Report 6404989-0 (Version None)
Quarter: 2009Q4

REPORT INFORMATION
  Report Type: 
  Country: None (occurrence: None)
  Receive Date: 20091019
  Receipt Date: 20091012
  Transmission Date: 20100525
  Serious: Yes (Other)
  Sender: FDA-Public Use
  Company Number: GB-TEVA-212055ISR

PATIENT
  Sex: Female

DRUGS (2)
  1. METHOTREXATE [Suspect]
     Indication: RHEUMATOID ARTHRITIS
  2. ORENCIA [Suspect]
     Indication: RHEUMATOID ARTHRITIS

REACTIONS (1)
  - BONE DISORDER [None]
